FAERS Safety Report 6168110-9 (Version None)
Quarter: 2009Q2

REPORT INFORMATION
  Report Type: 
  Country: None (occurrence: None)
  Receive Date: 20090427
  Receipt Date: 20090416
  Transmission Date: 20091009
  Serious: Yes (Other)
  Sender: FDA-Public Use
  Company Number: US-PFIZER INC-2004225743US

PATIENT
  Sex: Female
  Weight: 69 kg

DRUGS (9)
  1. PROVERA [Suspect]
     Indication: HORMONE REPLACEMENT THERAPY
     Dosage: UNK
     Route: 065
     Dates: start: 19830101, end: 19960101
  2. PROVERA [Suspect]
     Route: 065
     Dates: start: 19890101, end: 19960101
  3. PREMARIN [Suspect]
     Indication: HORMONE REPLACEMENT THERAPY
     Dosage: UNK
     Route: 065
     Dates: start: 19830101, end: 19960101
  4. PREMARIN [Suspect]
     Route: 065
     Dates: start: 19890101, end: 19960101
  5. PREMPRO [Suspect]
     Indication: HORMONE REPLACEMENT THERAPY
     Route: 065
  6. ACETYLSALICYLIC ACID SRT [Concomitant]
     Route: 065
  7. AMLODIPINE BESYLATE [Concomitant]
     Route: 065
  8. TRIAMTERENE [Concomitant]
     Route: 065
  9. TOLTERODINE TARTRATE [Concomitant]
     Route: 065
     Dates: start: 20000101

REACTIONS (1)
  - BREAST CANCER [None]
